FAERS Safety Report 4282444-4 (Version None)
Quarter: 2004Q1

REPORT INFORMATION
  Report Type: 
  Country: None (occurrence: None)
  Receive Date: 20040129
  Receipt Date: 20040116
  Transmission Date: 20041129
  Serious: Yes (Other)
  Sender: FDA-Public Use
  Company Number: US-JNJFOC-20040103276

PATIENT
  Age: 55 Year
  Sex: Female

DRUGS (17)
  1. INFLIXIMAB (INFLIXIMAB, RECOMBINANT) LYOPHILIZED POWDER [Suspect]
     Indication: RHEUMATOID ARTHRITIS
     Dosage: INTRAVENOUS
     Route: 042
     Dates: start: 20010711
  2. PROPOXY (DEXTROPROPOXYPHENE) [Concomitant]
  3. NEURONTIN (TABLETS) GABAPENTN [Concomitant]
  4. ULTRAM [Concomitant]
  5. TRICOR [Concomitant]
  6. DIOVAN [Concomitant]
  7. WELLBUTRIN [Concomitant]
  8. PREMPRO (PROVERLLA -14) [Concomitant]
  9. GLUCOPHAGE [Concomitant]
  10. ATIVAN [Concomitant]
  11. NORVASC [Concomitant]
  12. COZAAR [Concomitant]
  13. ACIPHEX [Concomitant]
  14. RANITIDINE [Concomitant]
  15. HUMALOG [Concomitant]
  16. LANTIS INSULIN (INSULIN GLARGNE) [Concomitant]
  17. VITAMIN E [Concomitant]

REACTIONS (1)
  - UTERINE CANCER [None]
